FAERS Safety Report 11211080 (Version 1)
Quarter: 2015Q2

REPORT INFORMATION
  Report Type: Spontaneous
  Country: US (occurrence: US)
  Receive Date: 20150623
  Receipt Date: 20150623
  Transmission Date: 20150821
  Serious: No
  Sender: FDA-Public Use
  Company Number: US-BRISTOL-MYERS SQUIBB COMPANY-BMS-2015-038009

PATIENT
  Sex: Female
  Weight: 47.62 kg

DRUGS (2)
  1. ADVIL (MEFENAMIC ACID) [Concomitant]
     Active Substance: MEFENAMIC ACID
     Indication: PAIN
     Dosage: UNK, PRN
     Route: 005
  2. OPDIVO [Suspect]
     Active Substance: NIVOLUMAB
     Indication: SQUAMOUS CELL CARCINOMA OF LUNG
     Dosage: UNK
     Route: 042

REACTIONS (10)
  - Headache [Not Recovered/Not Resolved]
  - Joint swelling [Unknown]
  - Cough [Unknown]
  - Hair growth abnormal [Unknown]
  - Weight decreased [Unknown]
  - Urine output decreased [Recovering/Resolving]
  - Arthralgia [Recovering/Resolving]
  - Peripheral swelling [Unknown]
  - Myalgia [Recovering/Resolving]
  - Dyspepsia [Unknown]
